FAERS Safety Report 10177768 (Version 1)
Quarter: 2014Q2

REPORT INFORMATION
  Report Type: Spontaneous
  Country: US (occurrence: US)
  Receive Date: 20140516
  Receipt Date: 20140516
  Transmission Date: 20141212
  Serious: No
  Sender: FDA-Public Use
  Company Number: US-SANOFI-AVENTIS-2013SA069318

PATIENT
  Age: 63 Year
  Sex: Male

DRUGS (6)
  1. APIDRA SOLOSTAR [Suspect]
     Indication: TYPE 2 DIABETES MELLITUS
     Dosage: PRODUCT STARTED TWO YEARS AGO. DOSAGE - ON SLIDING SCALE. DOSE:22 UNIT(S)
     Route: 058
  2. APIDRA SOLOSTAR [Suspect]
     Indication: TYPE 2 DIABETES MELLITUS
     Dosage: PRODUCT STARTED TWO YEARS AGO. DOSAGE - ON SLIDING SCALE. DOSE:22 UNIT(S)
     Route: 058
  3. SOLOSTAR [Suspect]
     Indication: TYPE 2 DIABETES MELLITUS
     Dosage: PRODUCT STATED TWO YEARS AGO.
  4. SOLOSTAR [Suspect]
     Indication: TYPE 2 DIABETES MELLITUS
     Dosage: PRODUCT STATED TWO YEARS AGO.
  5. LANTUS SOLOSTAR [Concomitant]
     Dosage: PRODUCT STARTED TWO YEARS AGO.
     Route: 051
  6. SOLOSTAR [Concomitant]
     Dosage: PRODUCT STARTED TWO YEARS AGO.

REACTIONS (3)
  - Injection site reaction [Not Recovered/Not Resolved]
  - Blood glucose increased [Recovered/Resolved]
  - Glycosylated haemoglobin increased [Not Recovered/Not Resolved]
